FAERS Safety Report 10183845 (Version 1)
Quarter: 2014Q2

REPORT INFORMATION
  Report Type: Spontaneous
  Country: CN (occurrence: CN)
  Receive Date: 20140520
  Receipt Date: 20140520
  Transmission Date: 20141212
  Serious: Yes (Other)
  Sender: FDA-Public Use
  Company Number: PHHY2014CN059368

PATIENT
  Age: 36 Year
  Sex: Female
  Weight: 45 kg

DRUGS (1)
  1. SANDIMMUN NEORAL [Suspect]
     Indication: IMMUNOSUPPRESSION
     Dosage: 100 MG, QD
     Route: 048
     Dates: start: 20131209, end: 20131213

REACTIONS (1)
  - Bone marrow failure [Unknown]
